FAERS Safety Report 15127431 (Version 7)
Quarter: 2019Q2

REPORT INFORMATION
  Report Type: Spontaneous
  Country: US (occurrence: US)
  Receive Date: 20180710
  Receipt Date: 20190412
  Transmission Date: 20190711
  Serious: Yes (Hospitalization, Other)
  Sender: FDA-Public Use
  Company Number: US-ACTELION-A-US2018-174984

PATIENT
  Age: 75 Year
  Sex: Female

DRUGS (2)
  1. OPSUMIT [Suspect]
     Active Substance: MACITENTAN
     Indication: PULMONARY ARTERIAL HYPERTENSION
     Dosage: 10 MG, QD
     Route: 048
     Dates: start: 20180510, end: 20190401
  2. ADEMPAS [Concomitant]
     Active Substance: RIOCIGUAT
     Dosage: UNK
     Dates: end: 201806

REACTIONS (6)
  - End stage renal disease [Not Recovered/Not Resolved]
  - Dyspnoea [Unknown]
  - Haemodialysis [Unknown]
  - Hypoxia [Unknown]
  - Acute respiratory failure [Unknown]
  - Arteriovenous fistula operation [Unknown]

NARRATIVE: CASE EVENT DATE: 201903
